FAERS Safety Report 14947702 (Version 7)
Quarter: 2019Q1

REPORT INFORMATION
  Report Type: Report from Study
  Country: US (occurrence: US)
  Receive Date: 20180529
  Receipt Date: 20190108
  Transmission Date: 20190417
  Serious: No
  Sender: FDA-Public Use
  Company Number: PHEH2018US020816

PATIENT
  Age: 61 Year
  Sex: Female

DRUGS (1)
  1. COSENTYX [Suspect]
     Active Substance: SECUKINUMAB
     Indication: PSORIASIS
     Dosage: 300 MG, QMO
     Route: 058
     Dates: start: 20180419

REACTIONS (8)
  - Therapeutic response shortened [Unknown]
  - Pain in extremity [Unknown]
  - Herpes zoster [Unknown]
  - Skin hypertrophy [Unknown]
  - Urticaria [Unknown]
  - Skin mass [Unknown]
  - Psoriasis [Recovering/Resolving]
  - Skin haemorrhage [Unknown]

NARRATIVE: CASE EVENT DATE: 20180510
